FAERS Safety Report 14619126 (Version 1)
Quarter: 2018Q1

REPORT INFORMATION
  Report Type: Spontaneous
  Country: DE (occurrence: DE)
  Receive Date: 20180309
  Receipt Date: 20180309
  Transmission Date: 20180509
  Serious: Yes (Other)
  Sender: FDA-Public Use
  Company Number: DE-PFIZER INC-2018097270

PATIENT
  Sex: Male

DRUGS (1)
  1. SILDENAFIL CITRATE. [Suspect]
     Active Substance: SILDENAFIL CITRATE
     Indication: PROSTATECTOMY
     Dosage: UNK

REACTIONS (7)
  - Product use in unapproved indication [Unknown]
  - Visual impairment [Not Recovered/Not Resolved]
  - Feeling hot [Recovered/Resolved]
  - Gastric disorder [Unknown]
  - Photopsia [Recovered/Resolved]
  - Erythema [Recovered/Resolved]
  - Lenticular opacities [Not Recovered/Not Resolved]
